FAERS Safety Report 6880220-7 (Version None)
Quarter: 2010Q3

REPORT INFORMATION
  Report Type: 
  Country: None (occurrence: None)
  Receive Date: 20100728
  Receipt Date: 20100716
  Transmission Date: 20110219
  Serious: Yes (Death, Hospitalization)
  Sender: FDA-Public Use
  Company Number: FR-SANOFI-AVENTIS-2010SA041572

PATIENT
  Sex: Female

DRUGS (3)
  1. TAXOTERE [Suspect]
     Indication: BREAST CANCER
     Route: 041
  2. EPIRUBICIN [Suspect]
     Indication: BREAST CANCER
     Route: 041
  3. CYCLOPHOSPHAMIDE [Suspect]
     Indication: BREAST CANCER
     Route: 041

REACTIONS (2)
  - FEBRILE NEUTROPENIA [None]
  - PRODUCT QUALITY ISSUE [None]
